FAERS Safety Report 9494173 (Version 4)
Quarter: 2013Q3

REPORT INFORMATION
  Report Type: Spontaneous
  Country: GB (occurrence: GB)
  Receive Date: 20130903
  Receipt Date: 20130930
  Transmission Date: 20140515
  Serious: Yes (Death, Other)
  Sender: FDA-Public Use
  Company Number: PHFR2013GB004999

PATIENT
  Sex: Female

DRUGS (9)
  1. CLOZARIL [Suspect]
     Indication: SCHIZOPHRENIA
     Dosage: UNK
     Route: 048
     Dates: start: 20020118
  2. DEPAKOTE [Concomitant]
     Dosage: 750 MG, UNK
     Route: 048
  3. HYOSCINE [Concomitant]
     Dosage: 900 UG, UNK
     Route: 048
  4. FERROUS SULPHATE [Concomitant]
     Dosage: 200 MG, UNK
     Route: 048
  5. PANTOPRAZOLE [Concomitant]
     Dosage: 40 MG, UNK
     Route: 048
  6. PIOGLITAZONE [Concomitant]
     Dosage: 45 MG, UNK
     Route: 048
  7. TOLTERODINE [Concomitant]
     Dosage: 4 MG, UNK
     Route: 048
  8. SERTRALINE [Concomitant]
     Dosage: 200 MG, UNK
     Route: 048
  9. METFORMIN [Concomitant]
     Dosage: 2 G, UNK
     Route: 048

REACTIONS (8)
  - Atrioventricular block [Fatal]
  - Deep vein thrombosis [Fatal]
  - Myocardial infarction [Fatal]
  - Obesity [Unknown]
  - Pulmonary embolism [Unknown]
  - Blood glucose increased [Not Recovered/Not Resolved]
  - Weight increased [Not Recovered/Not Resolved]
  - Anaemia [Unknown]
